FAERS Safety Report 14821459 (Version 1)
Quarter: 2018Q2

REPORT INFORMATION
  Report Type: Spontaneous
  Country: US (occurrence: US)
  Receive Date: 20180420
  Receipt Date: 20180420
  Transmission Date: 20180711
  Serious: Yes (Other)
  Sender: FDA-Public Use
  Company Number: None

PATIENT
  Age: 70 Year
  Sex: Male

DRUGS (1)
  1. ZYTIGA [Suspect]
     Active Substance: ABIRATERONE ACETATE
     Indication: PROSTATE CANCER
     Route: 048
     Dates: start: 20170719, end: 20180326

REACTIONS (6)
  - Diarrhoea [None]
  - Vomiting [None]
  - Weight decreased [None]
  - Abdominal pain upper [None]
  - Chromaturia [None]
  - Pancreatic disorder [None]
